FAERS Safety Report 19665565 (Version 4)
Quarter: 2024Q1

REPORT INFORMATION
  Report Type: Spontaneous
  Country: US (occurrence: US)
  Receive Date: 20210806
  Receipt Date: 20240217
  Transmission Date: 20240410
  Serious: Yes (Other)
  Sender: FDA-Public Use
  Company Number: US-ACCORD-220489

PATIENT
  Age: 67 Year
  Sex: Female

DRUGS (5)
  1. DOCETAXEL [Suspect]
     Active Substance: DOCETAXEL\DOCETAXEL ANHYDROUS
     Indication: Breast cancer
     Dosage: NUMBER OF CYCLES: 4 CYCLES?FREQUENCY : EVERY 3 WEEKS ?C1-C3: 139.5 MG?C4: 104.62 MG
     Dates: start: 20190422, end: 20190624
  2. CARBOPLATIN [Suspect]
     Active Substance: CARBOPLATIN
     Indication: Breast cancer
     Dates: start: 20190422, end: 20190624
  3. PARAPLATIN [Suspect]
     Active Substance: CARBOPLATIN
     Indication: Breast cancer
     Dosage: IN NS 250 ML
     Route: 042
     Dates: start: 20190422, end: 20190624
  4. PARAPLATIN [Suspect]
     Active Substance: CARBOPLATIN
     Indication: Breast cancer
     Dosage: IN NS 250 ML
     Route: 042
  5. PARAPLATIN [Suspect]
     Active Substance: CARBOPLATIN
     Indication: Breast cancer
     Dosage: IN NS 250 ML
     Route: 042

REACTIONS (5)
  - Off label use [Unknown]
  - Conjunctivitis [Recovered/Resolved]
  - Dacryostenosis acquired [Not Recovered/Not Resolved]
  - Cataract [Unknown]
  - Nail disorder [Unknown]

NARRATIVE: CASE EVENT DATE: 20190621
